FAERS Safety Report 14609237 (Version 1)
Quarter: 2018Q1

REPORT INFORMATION
  Report Type: Spontaneous
  Country: US (occurrence: US)
  Receive Date: 20180307
  Receipt Date: 20180307
  Transmission Date: 20180509
  Serious: Yes (Other)
  Sender: FDA-Public Use
  Company Number: US-LPDUSPRD-20180265

PATIENT

DRUGS (2)
  1. LIDOCAINE HCL INJECTION, USP (0625-25) [Suspect]
     Active Substance: LIDOCAINE HYDROCHLORIDE
     Dosage: 1 MG/KG/H
     Route: 041
  2. ORAL MORPHINE EQUIVALENT [Concomitant]
     Dosage: UNKNOWN
     Route: 065

REACTIONS (3)
  - Drug level increased [Unknown]
  - Delirium [Unknown]
  - Product use in unapproved indication [Unknown]
